FAERS Safety Report 5327763-5 (Version None)
Quarter: 2007Q2

REPORT INFORMATION
  Report Type: 
  Country: None (occurrence: None)
  Receive Date: 20070517
  Receipt Date: 20070510
  Transmission Date: 20071010
  Serious: Yes (Other)
  Sender: FDA-Public Use
  Company Number: ZA-ASTRAZENECA-2007SE02717

PATIENT
  Age: 47 Year
  Sex: Male
  Weight: 110 kg

DRUGS (4)
  1. CRESTOR [Suspect]
     Indication: BLOOD CHOLESTEROL
     Route: 048
     Dates: start: 20061101
  2. ZIAK [Concomitant]
     Indication: BLOOD PRESSURE
     Route: 048
  3. RENITEC [Concomitant]
     Indication: BLOOD PRESSURE
     Route: 048
  4. NORVASC [Concomitant]
     Indication: BLOOD PRESSURE
     Route: 048

REACTIONS (4)
  - HEPATITIS [None]
  - HEPATOMEGALY [None]
  - NAUSEA [None]
  - VOMITING [None]
